FAERS Safety Report 4597192-0 (Version None)
Quarter: 2005Q1

REPORT INFORMATION
  Report Type: 
  Country: None (occurrence: None)
  Receive Date: 20050301
  Receipt Date: 20050217
  Transmission Date: 20050727
  Serious: Yes (Other)
  Sender: FDA-Public Use
  Company Number: GBWYE441921FEB05

PATIENT
  Age: 36 Year
  Sex: Female

DRUGS (4)
  1. TAZOCIN (PIPERACILLIN/TAZOBACTAM, INJECTION) [Suspect]
     Indication: CYSTIC FIBROSIS
     Dosage: 6.75G INTRAVENOUS
     Route: 042
     Dates: start: 20050201, end: 20050201
  2. TAZOCIN (PIPERACILLIN/TAZOBACTAM, INJECTION) [Suspect]
     Indication: INFECTION
     Dosage: 6.75G INTRAVENOUS
     Route: 042
     Dates: start: 20050201, end: 20050201
  3. TOBRAMYCIN [Concomitant]
  4. AZTREONAM (AZTREONAM) [Concomitant]

REACTIONS (4)
  - DIZZINESS [None]
  - PARAESTHESIA [None]
  - RASH MACULO-PAPULAR [None]
  - RASH PRURITIC [None]
